FAERS Safety Report 9214722 (Version 3)
Quarter: 2013Q2

REPORT INFORMATION
  Report Type: Report from Study
  Country: JP (occurrence: JP)
  Receive Date: 20130405
  Receipt Date: 20130625
  Transmission Date: 20140414
  Serious: Yes (Other)
  Sender: FDA-Public Use
  Company Number: JP-ROCHE-765347

PATIENT
  Age: 67 Year
  Sex: Female

DRUGS (10)
  1. PEG-INTERFERON ALFA 2A [Suspect]
     Indication: CHRONIC HEPATITIS C
     Dosage: DOSAGE IS UNCERTAIN.
     Route: 058
     Dates: start: 20100827, end: 20101119
  2. PEG-INTERFERON ALFA 2A [Suspect]
     Indication: CHRONIC HEPATITIS C
     Route: 058
     Dates: start: 20101126, end: 20120105
  3. RIBAVIRIN [Suspect]
     Indication: CHRONIC HEPATITIS C
     Route: 048
     Dates: start: 20101126, end: 20101230
  4. RIBAVIRIN [Suspect]
     Route: 048
  5. RIBAVIRIN [Suspect]
     Route: 048
     Dates: start: 20110219, end: 20110317
  6. RIBAVIRIN [Suspect]
     Route: 048
     Dates: start: 20110318, end: 20110526
  7. RIBAVIRIN [Suspect]
     Route: 048
     Dates: start: 20110527, end: 20110603
  8. RIBAVIRIN [Suspect]
     Route: 048
     Dates: start: 20110527, end: 20110603
  9. RIBAVIRIN [Suspect]
     Route: 048
     Dates: start: 20110604, end: 20110915
  10. RIBAVIRIN [Suspect]
     Route: 048
     Dates: start: 20111028, end: 20120105

REACTIONS (1)
  - Haemoglobin decreased [Recovered/Resolved]
